FAERS Safety Report 6548092-8 (Version None)
Quarter: 2010Q1

REPORT INFORMATION
  Report Type: 
  Country: None (occurrence: None)
  Receive Date: 20100124
  Receipt Date: 20091231
  Transmission Date: 20100710
  Serious: Yes (Other)
  Sender: FDA-Public Use
  Company Number: US-ALEXION-A200901054

PATIENT
  Sex: Male

DRUGS (13)
  1. SOLIRIS [Suspect]
     Indication: PAROXYSMAL NOCTURNAL HAEMOGLOBINURIA
     Dosage: 600 MG, UNK
     Route: 042
     Dates: start: 20090513
  2. SOLIRIS [Suspect]
     Dosage: Q 2 WEEKS
     Route: 042
  3. ASPIRIN [Concomitant]
     Dosage: 81 MG, QD
     Route: 048
  4. COLACE [Concomitant]
     Dosage: 100 MG, BID PRN
     Route: 048
  5. EXJADE [Concomitant]
     Dosage: 250 MG, QD
     Route: 048
  6. FOLIC ACID [Concomitant]
     Dosage: 1 MG, QD
     Route: 048
  7. K-DUR [Concomitant]
     Dosage: 10 MEQ, 2 TABS, QD
     Route: 048
  8. LORAZEPAM [Concomitant]
     Indication: NAUSEA
     Dosage: 1 MG, Q4H, PRN
     Route: 048
  9. MULTIVITAMIN                       /00831701/ [Concomitant]
     Dosage: 1 QD
     Route: 048
  10. OMEPRAZOLE [Concomitant]
     Dosage: 20 MG, QD
     Route: 048
  11. OXYBUTYNIN [Concomitant]
     Dosage: 5 MG, BID
     Route: 048
  12. TEMAZEPAM [Concomitant]
     Dosage: 15 MG, QHS
     Route: 048
  13. TOBRAMYCIN SULFATE [Concomitant]
     Dosage: 1 GTT, QD
     Route: 047

REACTIONS (5)
  - ANAEMIA [None]
  - BASAL CELL CARCINOMA [None]
  - CONSTIPATION [None]
  - HAEMATURIA [None]
  - WHITE BLOOD CELL COUNT INCREASED [None]
